FAERS Safety Report 13087448 (Version 2)
Quarter: 2017Q1

REPORT INFORMATION
  Report Type: Spontaneous
  Country: US (occurrence: US)
  Receive Date: 20170105
  Receipt Date: 20170118
  Transmission Date: 20170428
  Serious: Yes (Other)
  Sender: FDA-Public Use
  Company Number: US-GLENMARK PHARMACEUTICALS-2016GMK025680

PATIENT

DRUGS (3)
  1. TOPIRAMATE TABLETS 100MG [Suspect]
     Active Substance: TOPIRAMATE
     Indication: SEIZURE
     Dosage: 2 DF, HS
     Route: 048
     Dates: start: 2008
  2. LYRICA [Concomitant]
     Active Substance: PREGABALIN
     Indication: SEIZURE
     Dosage: 225 MG, QD
     Route: 048
     Dates: start: 2005
  3. CARBAMAZEPINE. [Concomitant]
     Active Substance: CARBAMAZEPINE
     Indication: SEIZURE
     Dosage: 600 MG, QD
     Route: 048
     Dates: start: 1999

REACTIONS (1)
  - Retinal vein occlusion [Not Recovered/Not Resolved]

NARRATIVE: CASE EVENT DATE: 201601
